FAERS Safety Report 5818042-8 (Version None)
Quarter: 2008Q3

REPORT INFORMATION
  Report Type: 
  Country: None (occurrence: None)
  Receive Date: 20080722
  Receipt Date: 20070806
  Transmission Date: 20090109
  Serious: Yes (Other)
  Sender: FDA-Public Use
  Company Number: US-BAYER-US-2007-029392

PATIENT
  Age: 74 Year
  Sex: Female
  Weight: 83 kg

DRUGS (3)
  1. MAGNEVIST [Suspect]
     Indication: NUCLEAR MAGNETIC RESONANCE IMAGING
     Dosage: UNIT DOSE: 20 ML
     Route: 042
     Dates: start: 20070802, end: 20070802
  2. XALATAN [Concomitant]
     Route: 047
  3. ATENOLOL [Concomitant]

REACTIONS (6)
  - DYSPNOEA [None]
  - HYPERSENSITIVITY [None]
  - LACRIMATION INCREASED [None]
  - OXYGEN SATURATION DECREASED [None]
  - SWELLING FACE [None]
  - URTICARIA [None]
